FAERS Safety Report 7528946-6 (Version None)
Quarter: 2011Q2

REPORT INFORMATION
  Report Type: 
  Country: None (occurrence: None)
  Receive Date: 20110607
  Receipt Date: 20110602
  Transmission Date: 20111010
  Serious: Yes (Other)
  Sender: FDA-Public Use
  Company Number: GB-TEVA-284571ISR

PATIENT
  Age: 60 Year
  Sex: Male

DRUGS (1)
  1. BUMETANIDE [Suspect]
     Indication: HYPERTENSION
     Dosage: 1 MILLIGRAM;
     Route: 048
     Dates: start: 20110510, end: 20110513

REACTIONS (3)
  - ERYTHEMA [None]
  - URTICARIA [None]
  - OEDEMA PERIPHERAL [None]
